FAERS Safety Report 5073123-4 (Version None)
Quarter: 2006Q2

REPORT INFORMATION
  Report Type: 
  Country: None (occurrence: None)
  Receive Date: 20060627
  Receipt Date: 20060717
  Transmission Date: 20061013
  Serious: Yes (Life-Threatening, Hospitalization)
  Sender: FDA-Public Use
  Company Number: 200610378

PATIENT
  Age: 56 Year
  Sex: Female
  Weight: 81 kg

DRUGS (7)
  1. SANDOGLOBULIN [Suspect]
     Indication: IDIOPATHIC THROMBOCYTOPENIC PURPURA
     Dosage: 24 + 36 G DAILY IV - SEE IMAGE
     Route: 042
     Dates: start: 20060616, end: 20060617
  2. SANDOGLOBULIN [Suspect]
     Indication: IDIOPATHIC THROMBOCYTOPENIC PURPURA
     Dosage: 24 + 36 G DAILY IV - SEE IMAGE
     Route: 042
     Dates: start: 20060618, end: 20060618
  3. DAONIL [Concomitant]
  4. GLUCOPHAGE   /00082701/ [Concomitant]
  5. APROVEL [Concomitant]
  6. OMEPRAZOLE [Concomitant]
  7. CORTANCYL [Concomitant]

REACTIONS (10)
  - ABDOMINAL PAIN [None]
  - ANURIA [None]
  - BLOOD CREATININE INCREASED [None]
  - BLOOD PHOSPHORUS INCREASED [None]
  - BLOOD UREA INCREASED [None]
  - DIALYSIS [None]
  - DIARRHOEA [None]
  - HEADACHE [None]
  - NAUSEA [None]
  - RENAL FAILURE ACUTE [None]
